FAERS Safety Report 23530184 (Version 1)
Quarter: 2024Q1

REPORT INFORMATION
  Report Type: Spontaneous
  Country: JP (occurrence: JP)
  Receive Date: 20240216
  Receipt Date: 20240216
  Transmission Date: 20240409
  Serious: Yes (Hospitalization)
  Sender: FDA-Public Use
  Company Number: JP-aspen-SDZ2023JP053437AA

PATIENT
  Age: 74 Year
  Sex: Male

DRUGS (1)
  1. XYLOCAINE [Suspect]
     Active Substance: LIDOCAINE HYDROCHLORIDE
     Indication: Pyoderma gangrenosum
     Dosage: UNK
     Route: 003

REACTIONS (2)
  - Pyrexia [Unknown]
  - Application site pain [Unknown]

NARRATIVE: CASE EVENT DATE: 20231027
